FAERS Safety Report 5392885-X (Version None)
Quarter: 2007Q3

REPORT INFORMATION
  Report Type: 
  Country: None (occurrence: None)
  Receive Date: 20070721
  Receipt Date: 20070711
  Transmission Date: 20080115
  Serious: Yes (Life-Threatening)
  Sender: FDA-Public Use
  Company Number: GB-PFIZER INC-2007058182

PATIENT
  Age: 85 Year
  Sex: Female

DRUGS (5)
  1. GABAPENTIN [Suspect]
     Route: 048
  2. ATENOLOL [Concomitant]
     Route: 048
  3. PREDNISOLONE [Concomitant]
     Route: 048
  4. SIMVASTATIN [Concomitant]
  5. LEVOTHYROXINE SODIUM [Concomitant]
     Route: 048

REACTIONS (1)
  - HYPOXIA [None]
